FAERS Safety Report 9939362 (Version 4)
Quarter: 2014Q1

REPORT INFORMATION
  Report Type: Spontaneous
  Country: US (occurrence: US)
  Receive Date: 20140303
  Receipt Date: 20140327
  Transmission Date: 20141002
  Serious: Yes (Hospitalization)
  Sender: FDA-Public Use
  Company Number: US-BAXTER-2014BAX010199

PATIENT
  Sex: Male

DRUGS (1)
  1. DIANEAL PD2 (ULTRABAG) [Suspect]
     Indication: PERITONEAL DIALYSIS
     Route: 033

REACTIONS (6)
  - Infection [Recovered/Resolved]
  - Peritonitis [Recovered/Resolved]
  - Ulcer [Unknown]
  - Peritoneal dialysis complication [Unknown]
  - Fluid retention [Unknown]
  - Dyspnoea [Recovered/Resolved]
